FAERS Safety Report 20038864 (Version 4)
Quarter: 2025Q3

REPORT INFORMATION
  Report Type: Report from Study
  Country: US (occurrence: US)
  Receive Date: 20211105
  Receipt Date: 20250805
  Transmission Date: 20251020
  Serious: Yes (Hospitalization, Other)
  Sender: TAKEDA
  Company Number: US-TAKEDA-US202022885

PATIENT
  Sex: Male

DRUGS (3)
  1. PARATHYROID HORMONE [Suspect]
     Active Substance: PARATHYROID HORMONE
     Indication: Hypoparathyroidism
     Dosage: 100 MICROGRAM, QD
  2. PARATHYROID HORMONE [Suspect]
     Active Substance: PARATHYROID HORMONE
  3. PARATHYROID HORMONE [Suspect]
     Active Substance: PARATHYROID HORMONE

REACTIONS (6)
  - Pelvic infection [Not Recovered/Not Resolved]
  - Upper limb fracture [Not Recovered/Not Resolved]
  - Fall [Not Recovered/Not Resolved]
  - Face injury [Not Recovered/Not Resolved]
  - Hand fracture [Not Recovered/Not Resolved]
  - Product storage error [Unknown]
